FAERS Safety Report 6367658-1 (Version None)
Quarter: 2009Q3

REPORT INFORMATION
  Report Type: 
  Country: None (occurrence: None)
  Receive Date: 20090921
  Receipt Date: 20090914
  Transmission Date: 20100115
  Serious: Yes (Hospitalization)
  Sender: FDA-Public Use
  Company Number: CH-ROCHE-656583

PATIENT
  Age: 34 Year
  Sex: Female

DRUGS (9)
  1. RIVOTRIL [Suspect]
     Dosage: LONG TERM
     Route: 048
     Dates: end: 20090615
  2. HEROIN [Interacting]
     Indication: DRUG USE FOR UNKNOWN INDICATION
     Dosage: DOSAGE REGIMEN: 1 TOTAL
     Route: 065
     Dates: start: 20090614, end: 20090614
  3. CLOPIXOL [Interacting]
     Dosage: LONG TERM
     Route: 048
     Dates: end: 20090615
  4. NOZINAN [Interacting]
     Dosage: LONG TERM
     Route: 048
     Dates: end: 20090615
  5. DALMADORM [Interacting]
     Dosage: LONG TERM
     Route: 048
     Dates: end: 20090615
  6. NEXIUM [Concomitant]
     Dosage: LONG TERM
     Route: 048
  7. METFORMIN HCL [Concomitant]
     Dosage: LONG TERM
     Route: 048
  8. FOLIC ACID [Concomitant]
     Dosage: LONG TERM
     Route: 048
  9. FERRUM HAUSMANN [Concomitant]
     Route: 048

REACTIONS (3)
  - ALTERED STATE OF CONSCIOUSNESS [None]
  - DRUG INTERACTION [None]
  - RESPIRATORY DEPRESSION [None]
